FAERS Safety Report 6903493-0 (Version None)
Quarter: 2010Q3

REPORT INFORMATION
  Report Type: 
  Country: None (occurrence: None)
  Receive Date: 20100803
  Receipt Date: 20081031
  Transmission Date: 20110219
  Serious: No
  Sender: FDA-Public Use
  Company Number: US-PFIZER INC-2008085904

PATIENT
  Sex: Female
  Weight: 54.43 kg

DRUGS (9)
  1. LYRICA [Suspect]
     Indication: NEUROPATHY PERIPHERAL
     Dates: start: 20080101, end: 20080101
  2. ETANERCEPT [Concomitant]
  3. CELEBREX [Concomitant]
  4. DIGOXIN [Concomitant]
  5. VERAPAMIL [Concomitant]
  6. VITAMIN TAB [Concomitant]
  7. CALCIUM [Concomitant]
  8. VITAMIN B COMPLEX CAP [Concomitant]
  9. ACETYLSALICYLIC ACID SRT [Concomitant]

REACTIONS (2)
  - CONTUSION [None]
  - OEDEMA PERIPHERAL [None]
